FAERS Safety Report 9423639 (Version 6)
Quarter: 2013Q4

REPORT INFORMATION
  Report Type: Spontaneous
  Country: DE (occurrence: DE)
  Receive Date: 20130726
  Receipt Date: 20131029
  Transmission Date: 20140711
  Serious: Yes (Other)
  Sender: FDA-Public Use
  Company Number: DE-AMGEN-DEUSP2013050877

PATIENT
  Age: 92 Year
  Sex: Female

DRUGS (3)
  1. ARANESP [Suspect]
     Indication: PRODUCT USED FOR UNKNOWN INDICATION
     Dosage: 30 MUG, QWK
     Route: 058
     Dates: start: 20130304, end: 201305
  2. ARANESP [Suspect]
     Dosage: UNK
     Route: 065
  3. FERINJECT [Concomitant]

REACTIONS (3)
  - Circulatory collapse [Unknown]
  - Gastrointestinal disorder [Unknown]
  - Inappropriate schedule of drug administration [Unknown]
